FAERS Safety Report 22129252 (Version 3)
Quarter: 2023Q2

REPORT INFORMATION
  Report Type: Other
  Country: US (occurrence: None)
  Receive Date: 20230323
  Receipt Date: 20230420
  Transmission Date: 20230721
  Serious: Yes (Hospitalization, Other)
  Sender: FDA-Public Use
  Company Number: US-ROCHE-3309066

PATIENT
  Age: 62 Year
  Sex: Female
  Weight: 65.830 kg

DRUGS (22)
  1. OCREVUS [Suspect]
     Active Substance: OCRELIZUMAB
     Indication: Multiple sclerosis relapse
     Dosage: TWO APPOINTMENTS TO SPLIT THE FIRST DOSE OF YOUR INFUSION (INFUSE 300MG WEEK 1 AND WEEK 3)?DOT: 8/AU
     Route: 042
     Dates: start: 202208
  2. ATORVASTATIN [Concomitant]
     Active Substance: ATORVASTATIN
  3. SINGULAIR [Concomitant]
     Active Substance: MONTELUKAST SODIUM
  4. ADDERALL XR [Concomitant]
     Active Substance: AMPHETAMINE ASPARTATE\AMPHETAMINE SULFATE\DEXTROAMPHETAMINE SACCHARATE\DEXTROAMPHETAMINE SULFATE
  5. PRAZOSIN [Concomitant]
     Active Substance: PRAZOSIN
  6. FLUOXETINE [Concomitant]
     Active Substance: FLUOXETINE HYDROCHLORIDE
  7. HYDROXYZINE [Concomitant]
     Active Substance: HYDROXYZINE HYDROCHLORIDE
  8. REXULTI [Concomitant]
     Active Substance: BREXPIPRAZOLE
  9. COPAXONE [Concomitant]
     Active Substance: GLATIRAMER ACETATE
  10. TESSALON [Concomitant]
     Active Substance: BENZONATATE
  11. PANTOPRAZOLE [Concomitant]
     Active Substance: PANTOPRAZOLE
  12. HYDROXYZINE PAMOATE [Concomitant]
     Active Substance: HYDROXYZINE PAMOATE
  13. CLONAZEPAM [Concomitant]
     Active Substance: CLONAZEPAM
     Indication: Depression
     Dosage: ONE IN MORNING, ONE AT NIGHT
     Route: 048
  14. CLONAZEPAM [Concomitant]
     Active Substance: CLONAZEPAM
     Indication: Anxiety
  15. MONTELUKAST [Concomitant]
     Active Substance: MONTELUKAST SODIUM
  16. CARVEDILOL [Concomitant]
     Active Substance: CARVEDILOL
  17. TRAZODONE [Concomitant]
     Active Substance: TRAZODONE HYDROCHLORIDE
  18. FUROSEMIDE [Concomitant]
     Active Substance: FUROSEMIDE
  19. MELOXICAM [Concomitant]
     Active Substance: MELOXICAM
  20. CLONIDINE [Concomitant]
     Active Substance: CLONIDINE
  21. ACETAMINOPHEN\HYDROCODONE [Concomitant]
     Active Substance: ACETAMINOPHEN\HYDROCODONE
  22. ONDANSETRON [Concomitant]
     Active Substance: ONDANSETRON

REACTIONS (6)
  - COVID-19 [Not Recovered/Not Resolved]
  - Pulmonary mass [Not Recovered/Not Resolved]
  - Pancreatitis [Recovered/Resolved]
  - Hiatus hernia [Recovered/Resolved]
  - Suicidal ideation [Recovered/Resolved]
  - Post-traumatic stress disorder [Recovered/Resolved]

NARRATIVE: CASE EVENT DATE: 20221101
